FAERS Safety Report 11179681 (Version 2)
Quarter: 2015Q2

REPORT INFORMATION
  Report Type: Report from Study
  Country: CA (occurrence: CA)
  Receive Date: 20150611
  Receipt Date: 20150616
  Transmission Date: 20150821
  Serious: Yes (Other)
  Sender: FDA-Public Use
  Company Number: CA-AMGEN-CANSL2015056332

PATIENT
  Age: 55 Year
  Sex: Female

DRUGS (2)
  1. INSULIN                            /00646001/ [Concomitant]
     Active Substance: INSULIN NOS
     Dosage: UNK
  2. ENBREL [Suspect]
     Active Substance: ETANERCEPT
     Indication: RHEUMATOID ARTHRITIS
     Dosage: 25 MG, UNK
     Route: 065
     Dates: start: 20111023

REACTIONS (4)
  - Psoriasis [Unknown]
  - Eczema [Unknown]
  - Venous haemorrhage [Unknown]
  - Rash [Recovered/Resolved]
